FAERS Safety Report 11489667 (Version 1)
Quarter: 2015Q3

REPORT INFORMATION
  Report Type: Spontaneous
  Country: US (occurrence: US)
  Receive Date: 20150909
  Receipt Date: 20150909
  Transmission Date: 20151125
  Serious: Yes (Other)
  Sender: FDA-Public Use
  Company Number: US-KEDRION-2015074

PATIENT
  Sex: Male

DRUGS (1)
  1. RHOGAM [Suspect]
     Active Substance: HUMAN RHO(D) IMMUNE GLOBULIN

REACTIONS (4)
  - Foetal growth restriction [Unknown]
  - Rectal haemorrhage [Unknown]
  - Jaundice neonatal [Unknown]
  - Crohn^s disease [Unknown]
